FAERS Safety Report 9338050 (Version 1)
Quarter: 2013Q2

REPORT INFORMATION
  Report Type: Spontaneous
  Country: FR (occurrence: FR)
  Receive Date: 20130610
  Receipt Date: 20130610
  Transmission Date: 20140414
  Serious: Yes (Hospitalization)
  Sender: FDA-Public Use
  Company Number: FR-US-EMD SERONO, INC.-7214980

PATIENT
  Age: 28 Year
  Sex: Female

DRUGS (1)
  1. GONAL-F [Suspect]
     Indication: ASSISTED FERTILISATION
     Dates: start: 201212

REACTIONS (1)
  - Panic disorder [Recovering/Resolving]
